FAERS Safety Report 22687567 (Version 2)
Quarter: 2024Q2

REPORT INFORMATION
  Report Type: Spontaneous
  Country: AT (occurrence: AT)
  Receive Date: 20230710
  Receipt Date: 20240401
  Transmission Date: 20240716
  Serious: Yes (Death)
  Sender: FDA-Public Use
  Company Number: AT-PFIZER INC-2005110867

PATIENT
  Age: 9 Year
  Sex: Female
  Weight: 2.83 kg

DRUGS (2)
  1. SOMATROPIN [Suspect]
     Active Substance: SOMATROPIN
     Dosage: 0.14 MG/KG, WEEKLY
  2. SOMATROPIN [Suspect]
     Active Substance: SOMATROPIN
     Dosage: 0.28 MG/KG, WEEKLY
     Route: 065

REACTIONS (1)
  - Sudden death [Fatal]
